FAERS Safety Report 9674210 (Version 1)
Quarter: 2013Q4

REPORT INFORMATION
  Report Type: Report from Study
  Country: US (occurrence: US)
  Receive Date: 20131106
  Receipt Date: 20131106
  Transmission Date: 20140711
  Serious: Yes (Hospitalization, Other)
  Sender: FDA-Public Use
  Company Number: US-ABBVIE-13P-163-1166257-00

PATIENT
  Sex: Male
  Weight: 100.33 kg

DRUGS (6)
  1. HUMIRA [Suspect]
     Indication: CROHN^S DISEASE
     Dates: start: 201305, end: 201307
  2. HUMIRA [Suspect]
     Dates: start: 201307
  3. OMEPRAZOLE [Concomitant]
     Indication: GASTROOESOPHAGEAL REFLUX DISEASE
  4. IRON [Concomitant]
     Indication: ANAEMIA
  5. FOLIC ACID [Concomitant]
     Indication: VITAMIN SUPPLEMENTATION
  6. PRENATAL VITAMIN [Concomitant]
     Indication: HYPOVITAMINOSIS

REACTIONS (8)
  - Large intestinal stenosis [Not Recovered/Not Resolved]
  - Intestinal obstruction [Unknown]
  - Abdominal adhesions [Unknown]
  - Hepatomegaly [Unknown]
  - Diabetes mellitus [Unknown]
  - Abdominal pain [Unknown]
  - Hepatic steatosis [Unknown]
  - Drug ineffective [Unknown]
